FAERS Safety Report 16684815 (Version 1)
Quarter: 2019Q3

REPORT INFORMATION
  Report Type: Spontaneous
  Country: FR (occurrence: FR)
  Receive Date: 20190808
  Receipt Date: 20190808
  Transmission Date: 20191004
  Serious: Yes (Other)
  Sender: FDA-Public Use
  Company Number: FR-MYLANLABS-2019M1073931

PATIENT
  Age: 82 Year
  Sex: Male
  Weight: 90 kg

DRUGS (5)
  1. NOVORAPID [Concomitant]
     Active Substance: INSULIN ASPART
     Indication: TYPE 2 DIABETES MELLITUS
     Dosage: 6 INTERNATIONAL UNIT, QD
     Route: 058
     Dates: start: 20190129
  2. VASELINE                           /00473501/ [Suspect]
     Active Substance: PARAFFIN
     Indication: RASH
     Dosage: 1 DOSAGE FORM, QD
     Route: 003
     Dates: start: 20190131, end: 20190205
  3. SPIRONOLACTONE MYLAN 25 MG, COMPRIM? PELLICUL? S?CABLE [Suspect]
     Active Substance: SPIRONOLACTONE
     Indication: CARDIAC FAILURE
     Dosage: 12.5 MILLIGRAM, QD
     Route: 048
     Dates: start: 20190130, end: 20190201
  4. LANTUS [Concomitant]
     Active Substance: INSULIN GLARGINE
     Dosage: 29 INTERNATIONAL UNIT, QD
     Route: 058
     Dates: start: 20190129
  5. HEMIGOXINE NATIVELLE [Concomitant]
     Active Substance: DIGOXIN
     Indication: CARDIAC FAILURE
     Dosage: 1 COMPLIM? 6 JOURS/7
     Route: 048
     Dates: start: 20181115

REACTIONS (1)
  - Dermatitis exfoliative generalised [Recovered/Resolved]

NARRATIVE: CASE EVENT DATE: 20190130
